FAERS Safety Report 23565021 (Version 2)
Quarter: 2024Q1

REPORT INFORMATION
  Report Type: Report from Study
  Country: NL (occurrence: NL)
  Receive Date: 20240226
  Receipt Date: 20240313
  Transmission Date: 20240410
  Serious: Yes (Other)
  Sender: FDA-Public Use
  Company Number: NL-BAYER-2024A026256

PATIENT
  Age: 23 Year
  Sex: Female

DRUGS (1)
  1. MIRENA [Suspect]
     Active Substance: LEVONORGESTREL
     Dosage: 20?G/DAY
     Route: 015
     Dates: start: 202104, end: 202311

REACTIONS (5)
  - Device breakage [None]
  - Complication of device removal [Recovered/Resolved]
  - Suspected product quality issue [None]
  - Procedural pain [None]
  - Reproductive tract procedural complication [None]

NARRATIVE: CASE EVENT DATE: 20231001
